APPROVED DRUG PRODUCT: FENOFIBRIC ACID
Active Ingredient: CHOLINE FENOFIBRATE
Strength: EQ 45MG FENOFIBRIC ACID
Dosage Form/Route: CAPSULE, DELAYED RELEASE;ORAL
Application: A207796 | Product #001
Applicant: MACLEODS PHARMACEUTICALS LTD
Approved: Feb 8, 2024 | RLD: No | RS: No | Type: DISCN